FAERS Safety Report 6156451-0 (Version None)
Quarter: 2009Q2

REPORT INFORMATION
  Report Type: 
  Country: None (occurrence: None)
  Receive Date: 20090416
  Receipt Date: 20090406
  Transmission Date: 20091009
  Serious: Yes (Disabling, Other)
  Sender: FDA-Public Use
  Company Number: AT-JNJFOC-20090303131

PATIENT
  Age: 68 Year
  Sex: Male
  Weight: 83 kg

DRUGS (2)
  1. REMICADE [Suspect]
     Indication: DRUG USE FOR UNKNOWN INDICATION
     Route: 042
  2. DICLOFENAC SODIUM [Concomitant]
     Indication: PAIN
     Route: 048

REACTIONS (2)
  - B-CELL LYMPHOMA [None]
  - DRUG INEFFECTIVE [None]
